FAERS Safety Report 7121060-3 (Version None)
Quarter: 2010Q4

REPORT INFORMATION
  Report Type: 
  Country: None (occurrence: None)
  Receive Date: 20101124
  Receipt Date: 20101117
  Transmission Date: 20110411
  Serious: Yes (Death, Hospitalization, Other)
  Sender: FDA-Public Use
  Company Number: ES-JNJFOC-20101106832

PATIENT
  Age: 59 Year
  Sex: Female

DRUGS (5)
  1. TAVANIC [Suspect]
     Indication: RESPIRATORY TRACT INFECTION
     Route: 048
  2. AUGMENTIN XR [Suspect]
     Indication: PNEUMONIA
     Route: 048
  3. TAZOCEL [Concomitant]
     Route: 065
  4. METAMIZOLE [Concomitant]
     Route: 065
  5. URBASON [Concomitant]
     Route: 065

REACTIONS (6)
  - CYTOLYTIC HEPATITIS [None]
  - DRUG INEFFECTIVE [None]
  - LUNG ADENOCARCINOMA [None]
  - MALIGNANT NEOPLASM PROGRESSION [None]
  - ONCOLOGIC COMPLICATION [None]
  - PNEUMONIA [None]
